FAERS Safety Report 7398768-8 (Version None)
Quarter: 2011Q2

REPORT INFORMATION
  Report Type: 
  Country: None (occurrence: None)
  Receive Date: 20110401
  Receipt Date: 20110401
  Transmission Date: 20111010
  Serious: Yes (Hospitalization)
  Sender: FDA-Public Use
  Company Number: None

PATIENT
  Sex: Female
  Weight: 108 kg

DRUGS (19)
  1. METROPOLOL ER SUCCINATE [Concomitant]
  2. DIFUSINOL [Concomitant]
  3. NIACIN [Concomitant]
  4. PROMETHAZINE [Concomitant]
  5. ASPIRIN [Concomitant]
  6. FAMOTIDINE [Concomitant]
  7. FILGRASTIM [Concomitant]
  8. ALOE VESTA [Concomitant]
  9. PERCOCET [Concomitant]
  10. METFORMIN [Concomitant]
  11. TAXOL [Suspect]
     Dosage: 350 MG
  12. LEVOFLOXACIN [Concomitant]
  13. METAMUCIL-2 [Concomitant]
  14. ZOSYN [Concomitant]
  15. CARBOPLATIN [Suspect]
     Dosage: 620 MG
  16. OMERPRAZOLE [Concomitant]
  17. ACETAMINOPHEN AND OXYCODONE HCL [Concomitant]
  18. LEVOTHYROXINE SODIUM [Concomitant]
  19. LINSINOPROLOL/HCTZ [Concomitant]

REACTIONS (13)
  - NEUTROPENIA [None]
  - BODY TEMPERATURE DECREASED [None]
  - URINE OUTPUT DECREASED [None]
  - DIARRHOEA [None]
  - ASTHENIA [None]
  - BLOOD PRESSURE DECREASED [None]
  - FATIGUE [None]
  - DISCOMFORT [None]
  - DECREASED APPETITE [None]
  - HAEMOGLOBIN DECREASED [None]
  - BLOOD SODIUM DECREASED [None]
  - EXCORIATION [None]
  - HAEMATOCRIT DECREASED [None]
